FAERS Safety Report 10172193 (Version 1)
Quarter: 2014Q2

REPORT INFORMATION
  Report Type: Report from Study
  Country: FI (occurrence: FI)
  Receive Date: 20140515
  Receipt Date: 20140515
  Transmission Date: 20141212
  Serious: Yes (Hospitalization)
  Sender: FDA-Public Use
  Company Number: PHHY2014FI056770

PATIENT
  Age: 50 Year
  Sex: Male

DRUGS (2)
  1. LEPONEX [Suspect]
     Indication: SCHIZOPHRENIA
     Dosage: UNK
  2. LEPONEX [Suspect]
     Dosage: UNK
     Dates: start: 20140324

REACTIONS (7)
  - Tooth infection [Unknown]
  - Tooth abscess [Unknown]
  - Sepsis [Unknown]
  - Leukopenia [Recovering/Resolving]
  - Lymphopenia [Unknown]
  - Neutrophil count decreased [Recovering/Resolving]
  - Platelet count decreased [Unknown]
